FAERS Safety Report 14068478 (Version 1)
Quarter: 2017Q4

REPORT INFORMATION
  Report Type: Spontaneous
  Country: US (occurrence: US)
  Receive Date: 20171010
  Receipt Date: 20171010
  Transmission Date: 20180321
  Serious: Yes (Other)
  Sender: FDA-Public Use
  Company Number: None

PATIENT
  Sex: Male
  Weight: 68.85 kg

DRUGS (11)
  1. ISOSORBIDE MONONITRATE. [Concomitant]
     Active Substance: ISOSORBIDE MONONITRATE
  2. TAMSULOSIN [Concomitant]
     Active Substance: TAMSULOSIN
  3. IRON [Concomitant]
     Active Substance: IRON
  4. HYDROXYZINE [Concomitant]
     Active Substance: HYDROXYZINE HYDROCHLORIDE
  5. CHOLECALCIFEROL [Concomitant]
     Active Substance: CHOLECALCIFEROL
  6. ZYTIGA [Suspect]
     Active Substance: ABIRATERONE ACETATE
     Indication: NEOPLASM MALIGNANT
     Route: 048
     Dates: start: 20170630, end: 20171010
  7. FUROSEMIDE. [Concomitant]
     Active Substance: FUROSEMIDE
  8. TUMS CHEWY BITES [Concomitant]
     Active Substance: CALCIUM CARBONATE
  9. METOPROLOL. [Concomitant]
     Active Substance: METOPROLOL
  10. LUTEIN [Concomitant]
     Active Substance: LUTEIN
  11. ASPIRIN. [Concomitant]
     Active Substance: ASPIRIN

REACTIONS (1)
  - Disease progression [None]
